FAERS Safety Report 7496534-6 (Version None)
Quarter: 2011Q2

REPORT INFORMATION
  Report Type: 
  Country: None (occurrence: None)
  Receive Date: 20110523
  Receipt Date: 20110512
  Transmission Date: 20111010
  Serious: Yes (Hospitalization, Disabling, Other)
  Sender: FDA-Public Use
  Company Number: BR-ASTRAZENECA-2011SE29128

PATIENT
  Age: 53 Year
  Sex: Female
  Weight: 75 kg

DRUGS (4)
  1. DONAREN [Concomitant]
     Indication: AMPUTATION STUMP PAIN
     Route: 048
     Dates: start: 20070101
  2. PROPAFENONE HCL [Concomitant]
     Indication: ARRHYTHMIA
     Route: 048
     Dates: start: 20060101
  3. ALPRAZOLAM [Concomitant]
     Indication: AMPUTATION STUMP PAIN
     Route: 048
     Dates: start: 20070101
  4. ATACAND HCT [Suspect]
     Indication: HYPERTENSION
     Dosage: 16/12.5 MG
     Route: 048
     Dates: start: 20060101

REACTIONS (11)
  - NOSOCOMIAL INFECTION [None]
  - MEMORY IMPAIRMENT [None]
  - BLOOD PRESSURE INCREASED [None]
  - MONOPLEGIA [None]
  - LEG AMPUTATION [None]
  - FALL [None]
  - AXILLARY NERVE INJURY [None]
  - OSTEOMYELITIS [None]
  - MYALGIA [None]
  - DRUG INEFFECTIVE [None]
  - MULTIPLE INJURIES [None]
